FAERS Safety Report 7737161-2 (Version None)
Quarter: 2011Q3

REPORT INFORMATION
  Report Type: 
  Country: None (occurrence: None)
  Receive Date: 20110902
  Receipt Date: 20110824
  Transmission Date: 20111222
  Serious: Yes (Death, Hospitalization)
  Sender: FDA-Public Use
  Company Number: 2011MA012553

PATIENT
  Age: 43 Year
  Sex: Male

DRUGS (2)
  1. PRAMIPEXOLE DIHYCHLLORIDE [Suspect]
     Indication: PARKINSON'S DISEASE
     Dosage: 4.5 MG;QD
  2. CARBIDOPA + LEVODOPA [Suspect]
     Indication: PARKINSON'S DISEASE

REACTIONS (7)
  - HYPOMANIA [None]
  - BIPOLAR DISORDER [None]
  - DRUG INEFFECTIVE [None]
  - PSYCHIATRIC DECOMPENSATION [None]
  - COMPLETED SUICIDE [None]
  - MANIA [None]
  - OVERDOSE [None]
